FAERS Safety Report 18733351 (Version 2)
Quarter: 2021Q1

REPORT INFORMATION
  Report Type: Spontaneous
  Country: US (occurrence: US)
  Receive Date: 20210113
  Receipt Date: 20210204
  Transmission Date: 20210419
  Serious: No
  Sender: FDA-Public Use
  Company Number: US-BEH-2021126978

PATIENT
  Sex: Female

DRUGS (1)
  1. HIZENTRA [Suspect]
     Active Substance: HUMAN IMMUNOGLOBULIN G
     Indication: CHRONIC INFLAMMATORY DEMYELINATING POLYRADICULONEUROPATHY
     Dosage: 30 GRAM, QW
     Route: 058
     Dates: start: 20200825

REACTIONS (7)
  - Swelling [Unknown]
  - Ill-defined disorder [Unknown]
  - Injection site reaction [Unknown]
  - Pruritus [Unknown]
  - Infusion related reaction [Unknown]
  - Injection site extravasation [Unknown]
  - Headache [Unknown]
